FAERS Safety Report 6078031-8 (Version None)
Quarter: 2009Q1

REPORT INFORMATION
  Report Type: 
  Country: None (occurrence: None)
  Receive Date: 20090213
  Receipt Date: 20081217
  Transmission Date: 20090719
  Serious: Yes (Hospitalization)
  Sender: FDA-Public Use
  Company Number: DE-ASTRAZENECA-2009SE00749

PATIENT
  Sex: Female

DRUGS (6)
  1. METOPROLOL TARTRATE AND HYDROCHLOROTHIAZIDE [Suspect]
     Route: 048
     Dates: start: 20070101, end: 20080627
  2. METOHEXAL [Suspect]
     Route: 048
     Dates: start: 20080628
  3. MELNEURIN [Suspect]
     Route: 048
     Dates: start: 20080606, end: 20080707
  4. VIREAD [Suspect]
     Route: 048
     Dates: start: 20080501
  5. INSUMAN [Concomitant]
     Dates: start: 20070101
  6. LANTUS [Concomitant]
     Dates: start: 20070101

REACTIONS (2)
  - ACCOMMODATION DISORDER [None]
  - BRADYCARDIA [None]
